FAERS Safety Report 5807676-2 (Version None)
Quarter: 2008Q3

REPORT INFORMATION
  Report Type: 
  Country: None (occurrence: None)
  Receive Date: 20080711
  Receipt Date: 20080701
  Transmission Date: 20090109
  Serious: Yes (Hospitalization)
  Sender: FDA-Public Use
  Company Number: ES-ABBOTT-08P-144-0452797-00

PATIENT
  Sex: Male
  Weight: 110 kg

DRUGS (4)
  1. HUMIRA [Suspect]
     Indication: PSORIASIS
     Dosage: 1ST DOSE
     Route: 058
     Dates: start: 20080513, end: 20080513
  2. DAIVOBET (BLINDED) [Suspect]
     Indication: PSORIASIS
     Route: 061
     Dates: start: 20080513, end: 20080513
  3. ISONIAZID [Concomitant]
     Indication: ANTIBIOTIC PROPHYLAXIS
     Dates: start: 20080421
  4. EPROSARTAN MESILATE [Concomitant]
     Indication: HYPERTENSION
     Dates: start: 20060601

REACTIONS (1)
  - DERMATITIS EXFOLIATIVE [None]
